FAERS Safety Report 24876282 (Version 1)
Quarter: 2025Q1

REPORT INFORMATION
  Report Type: Report from Study
  Country: US (occurrence: US)
  Receive Date: 20250123
  Receipt Date: 20250123
  Transmission Date: 20250409
  Serious: Yes (Hospitalization)
  Sender: ROCHE
  Company Number: US-ROCHE-10000182025

PATIENT
  Age: 69 Year
  Sex: Female

DRUGS (1)
  1. OCREVUS [Suspect]
     Active Substance: OCRELIZUMAB
     Indication: Relapsing multiple sclerosis
     Dosage: THEN EVERY 6 MONTHS.?DATES OF TREATMENT: 15/DEC/2022, 29/DEC/2022, 26/JUN/2023, 27/DEC/2023, 19/JUL/
     Route: 042
     Dates: start: 20221215

REACTIONS (3)
  - Abdominal pain upper [Not Recovered/Not Resolved]
  - Gastric infection [Not Recovered/Not Resolved]
  - Liver disorder [Not Recovered/Not Resolved]

NARRATIVE: CASE EVENT DATE: 20250109
